FAERS Safety Report 7209132-6 (Version None)
Quarter: 2011Q1

REPORT INFORMATION
  Report Type: 
  Country: None (occurrence: None)
  Receive Date: 20110104
  Receipt Date: 20101229
  Transmission Date: 20110831
  Serious: Yes (Death)
  Sender: FDA-Public Use
  Company Number: PHHY2010FR89445

PATIENT
  Sex: Female

DRUGS (3)
  1. PACLITAXEL [Suspect]
     Dosage: 350 MG
     Dates: start: 20101124
  2. CARBOPLATIN [Concomitant]
     Dosage: 900 MG
  3. PACLITAXEL [Suspect]
     Indication: LUNG ADENOCARCINOMA
     Dosage: 330 MG, CYCLIC
     Route: 042
     Dates: start: 20101208

REACTIONS (4)
  - LARYNGOSPASM [None]
  - CARDIO-RESPIRATORY ARREST [None]
  - CYANOSIS [None]
  - PULSELESS ELECTRICAL ACTIVITY [None]
